FAERS Safety Report 10052091 (Version 1)
Quarter: 2014Q2

REPORT INFORMATION
  Report Type: Spontaneous
  Country: US (occurrence: None)
  Receive Date: 20140401
  Receipt Date: 20140401
  Transmission Date: 20141212
  Serious: Yes (Other)
  Sender: FDA-Public Use
  Company Number: None

PATIENT
  Age: 2 Year
  Sex: Male
  Weight: 17 kg

DRUGS (1)
  1. CLEOCIN [Suspect]
     Indication: CELLULITIS
     Dosage: 7ML TID
     Dates: start: 20140326, end: 20140331

REACTIONS (1)
  - Rash macular [None]
